FAERS Safety Report 24007654 (Version 5)
Quarter: 2024Q3

REPORT INFORMATION
  Report Type: Report from Study
  Country: ES (occurrence: ES)
  Receive Date: 20240625
  Receipt Date: 20240813
  Transmission Date: 20241017
  Serious: Yes (Hospitalization)
  Sender: JOHNSON AND JOHNSON
  Company Number: ES-JNJFOC-20240646658

PATIENT
  Age: 85 Year
  Sex: Male
  Weight: 85 kg

DRUGS (52)
  1. DARZALEX [Suspect]
     Active Substance: DARATUMUMAB
     Indication: Plasma cell myeloma
     Route: 058
     Dates: start: 20210531, end: 20240520
  2. BORTEZOMIB [Suspect]
     Active Substance: BORTEZOMIB
     Indication: Plasma cell myeloma
     Dosage: INITIAL 1.3 MG/M2?CURRENT 0.7 MG/M2
     Route: 058
     Dates: start: 20210531, end: 20240603
  3. ACYCLOVIR [Concomitant]
     Active Substance: ACYCLOVIR
     Indication: Prophylaxis
     Route: 048
     Dates: start: 20210820
  4. ALPRAZOLAM [Concomitant]
     Active Substance: ALPRAZOLAM
     Indication: Prophylaxis
     Route: 048
     Dates: start: 20210714
  5. ALPRAZOLAM [Concomitant]
     Active Substance: ALPRAZOLAM
     Route: 048
     Dates: start: 20240626
  6. ALPRAZOLAM [Concomitant]
     Active Substance: ALPRAZOLAM
     Dosage: 0.25 MG?1 MG
     Dates: start: 20240709
  7. DOMPERIDONE [Concomitant]
     Active Substance: DOMPERIDONE
     Indication: Gastrointestinal disorder therapy
     Route: 048
     Dates: start: 20220927
  8. DOMPERIDONE [Concomitant]
     Active Substance: DOMPERIDONE
     Dates: start: 20240704, end: 20240709
  9. DOMPERIDONE [Concomitant]
     Active Substance: DOMPERIDONE
     Route: 048
     Dates: start: 20240709
  10. PYRIDOXINE [Concomitant]
     Active Substance: PYRIDOXINE
     Indication: Nutritional supplementation
     Route: 048
     Dates: start: 20211116
  11. PYRIDOXINE [Concomitant]
     Active Substance: PYRIDOXINE
     Indication: Prophylaxis
  12. CYANOCOBALAMIN [Concomitant]
     Active Substance: CYANOCOBALAMIN
     Indication: Nutritional supplementation
     Route: 048
     Dates: start: 20211116
  13. CYANOCOBALAMIN [Concomitant]
     Active Substance: CYANOCOBALAMIN
     Indication: Prophylaxis
  14. THIAMINE [Concomitant]
     Active Substance: THIAMINE
     Indication: Nutritional supplementation
     Route: 048
     Dates: start: 20211116
  15. LEVOTHYROXINE SODIUM [Concomitant]
     Active Substance: LEVOTHYROXINE SODIUM
     Indication: Hypothyroidism
     Route: 048
     Dates: start: 1998
  16. LEVOTHYROXINE SODIUM [Concomitant]
     Active Substance: LEVOTHYROXINE SODIUM
     Dosage: 112 MCG
     Route: 048
     Dates: start: 20200205
  17. OMEPRAZOLE [Concomitant]
     Active Substance: OMEPRAZOLE
     Indication: Gastrointestinal disorder therapy
     Route: 048
     Dates: start: 20210714
  18. ONDANSETRON [Concomitant]
     Active Substance: ONDANSETRON
     Indication: Nausea
     Route: 042
     Dates: start: 20240617
  19. ONDANSETRON [Concomitant]
     Active Substance: ONDANSETRON
     Indication: Vomiting
     Route: 042
     Dates: start: 20240704, end: 20240705
  20. ONDANSETRON [Concomitant]
     Active Substance: ONDANSETRON
     Indication: Gastrointestinal disorder therapy
  21. NALOXONE [Concomitant]
     Active Substance: NALOXONE
     Indication: Pain
     Route: 048
     Dates: start: 20220223
  22. NALOXONE [Concomitant]
     Active Substance: NALOXONE
     Route: 048
     Dates: start: 20240709
  23. OXYCODONE [Concomitant]
     Active Substance: OXYCODONE
     Indication: Pain
     Route: 048
     Dates: start: 20220223
  24. OXYCODONE [Concomitant]
     Active Substance: OXYCODONE
     Route: 048
     Dates: start: 20240626
  25. OXYCODONE [Concomitant]
     Active Substance: OXYCODONE
     Dates: start: 20240709
  26. CALCIUM CARBONATE [Concomitant]
     Active Substance: CALCIUM CARBONATE
     Indication: Prophylaxis
     Route: 048
     Dates: start: 20210714
  27. CALCIUM CARBONATE [Concomitant]
     Active Substance: CALCIUM CARBONATE
     Route: 048
     Dates: start: 20240709
  28. CHOLECALCIFEROL [Concomitant]
     Active Substance: CHOLECALCIFEROL
     Indication: Prophylaxis
     Route: 048
     Dates: start: 20210714
  29. CHONDROITIN SULFATE (BOVINE) [Concomitant]
     Active Substance: CHONDROITIN SULFATE (BOVINE)
     Indication: Osteoarthritis
     Route: 048
     Dates: start: 20240321, end: 20240616
  30. CHONDROITIN SULFATE (BOVINE) [Concomitant]
     Active Substance: CHONDROITIN SULFATE (BOVINE)
     Route: 048
     Dates: start: 20240709
  31. GLUCOSAMINE [Concomitant]
     Active Substance: GLUCOSAMINE
     Indication: Osteoarthritis
     Route: 048
     Dates: start: 20240416, end: 20240616
  32. EBASTINE [Concomitant]
     Active Substance: EBASTINE
     Indication: Neuropathy peripheral
     Route: 048
     Dates: start: 20240321, end: 20240616
  33. IRBESARTAN [Concomitant]
     Active Substance: IRBESARTAN
     Indication: Hypertension
     Route: 048
     Dates: start: 20210419
  34. IRBESARTAN [Concomitant]
     Active Substance: IRBESARTAN
     Route: 048
     Dates: start: 20240709
  35. HYDROCHLOROTHIAZIDE [Concomitant]
     Active Substance: HYDROCHLOROTHIAZIDE
     Indication: Hypertension
     Route: 048
     Dates: start: 20210419
  36. HYDROCHLOROTHIAZIDE [Concomitant]
     Active Substance: HYDROCHLOROTHIAZIDE
     Route: 048
     Dates: start: 20240617, end: 20240626
  37. HYDROCHLOROTHIAZIDE [Concomitant]
     Active Substance: HYDROCHLOROTHIAZIDE
     Route: 048
     Dates: start: 20091123
  38. LACTULOSE [Concomitant]
     Active Substance: LACTULOSE
     Indication: Gastrointestinal disorder therapy
     Route: 048
     Dates: start: 20240622, end: 20240626
  39. FUROSEMIDE [Concomitant]
     Active Substance: FUROSEMIDE
     Indication: Prophylaxis
     Route: 042
     Dates: start: 20240618, end: 20240624
  40. PREGABALIN [Concomitant]
     Active Substance: PREGABALIN
     Indication: Pain prophylaxis
     Route: 048
     Dates: start: 20240618
  41. PREGABALIN [Concomitant]
     Active Substance: PREGABALIN
     Route: 048
     Dates: start: 20240704, end: 20240709
  42. PREGABALIN [Concomitant]
     Active Substance: PREGABALIN
     Dates: start: 20240709
  43. POTASSIUM PHOSPHATE, MONOBASIC [Concomitant]
     Active Substance: POTASSIUM PHOSPHATE, MONOBASIC
     Indication: Hypophosphataemia
     Route: 042
     Dates: start: 20240621, end: 20240624
  44. MAGNESIUM SULFATE [Concomitant]
     Active Substance: MAGNESIUM SULFATE\MAGNESIUM SULFATE HEPTAHYDRATE
     Indication: Hypomagnesaemia
     Route: 042
     Dates: start: 20240618, end: 20240621
  45. CHONDROITIN SULFATE (BOVINE) [Concomitant]
     Active Substance: CHONDROITIN SULFATE (BOVINE)
     Indication: Prophylaxis
     Route: 048
     Dates: start: 20240626
  46. FLURAZEPAM HYDROCHLORIDE [Concomitant]
     Active Substance: FLURAZEPAM HYDROCHLORIDE
     Indication: Sleep disorder therapy
     Route: 048
     Dates: start: 20240626
  47. FLURAZEPAM HYDROCHLORIDE [Concomitant]
     Active Substance: FLURAZEPAM HYDROCHLORIDE
     Route: 048
     Dates: start: 20240709
  48. LORMETAZEPAM [Concomitant]
     Active Substance: LORMETAZEPAM
     Indication: Sleep disorder therapy
     Route: 048
     Dates: start: 20240704, end: 20240709
  49. LOSARTAN [Concomitant]
     Active Substance: LOSARTAN\LOSARTAN POTASSIUM
     Indication: Hypertension
     Route: 048
     Dates: start: 20240704, end: 20240709
  50. CALCIUM PIDOLATE [Concomitant]
     Active Substance: CALCIUM PIDOLATE
     Indication: Prophylaxis
     Route: 048
     Dates: start: 20240704, end: 20240709
  51. OXYCODONE [Concomitant]
     Active Substance: OXYCODONE
     Indication: Pain prophylaxis
     Route: 048
     Dates: start: 20210830
  52. TIAMINE PLUS [Concomitant]
     Indication: Prophylaxis
     Route: 048
     Dates: start: 20211116

REACTIONS (2)
  - COVID-19 [Recovered/Resolved]
  - Respiratory tract infection [Recovered/Resolved]

NARRATIVE: CASE EVENT DATE: 20240616
